FAERS Safety Report 21623021 (Version 1)
Quarter: 2022Q4

REPORT INFORMATION
  Report Type: Spontaneous
  Country: CH (occurrence: None)
  Receive Date: 20221121
  Receipt Date: 20221121
  Transmission Date: 20230113
  Serious: Yes (Hospitalization)
  Sender: FDA-Public Use
  Company Number: 2022A383333

PATIENT
  Age: 75 Year
  Sex: Female

DRUGS (28)
  1. NEXIUM [Suspect]
     Active Substance: ESOMEPRAZOLE MAGNESIUM
     Indication: Product used for unknown indication
     Dosage: 20 MILLIGRAM, 1/DAY
     Route: 048
     Dates: start: 20220919, end: 20220928
  2. SIGNIFOR [Suspect]
     Active Substance: PASIREOTIDE DIASPARTATE
     Indication: Product used for unknown indication
     Dosage: 0.9 MILLIGRAM, 2/DAY
     Route: 058
     Dates: start: 20220919, end: 20220924
  3. CEFUROXIME SODIUM [Suspect]
     Active Substance: CEFUROXIME SODIUM
     Indication: Product used for unknown indication
     Dosage: 1.5 GRAM, ONCE1.5G ONCE/SINGLE ADMINISTRATION
     Route: 041
     Dates: start: 20220919, end: 20220919
  4. ENOXAPARIN SODIUM [Suspect]
     Active Substance: ENOXAPARIN SODIUM
     Indication: Product used for unknown indication
     Dosage: 40 MILLIGRAM, 1/DAY
     Route: 058
     Dates: start: 20220919, end: 20220929
  5. DAFALGAN [Suspect]
     Active Substance: ACETAMINOPHEN
     Indication: Product used for unknown indication
     Dosage: 1 GRAM, EVERY 6 HRS
     Route: 048
     Dates: start: 20220919, end: 20220928
  6. ONDANSETRON [Suspect]
     Active Substance: ONDANSETRON
     Indication: Product used for unknown indication
     Dosage: 4 MILLIGRAM, 1/DAY
     Route: 041
     Dates: start: 20220919, end: 20220924
  7. TORADOL [Suspect]
     Active Substance: KETOROLAC TROMETHAMINE
     Indication: Product used for unknown indication
     Dosage: 30 MILLIGRAM, ONCE30.0MG ONCE/SINGLE ADMINISTRATION
     Route: 040
     Dates: start: 20220919, end: 20220919
  8. METOCLOPRAMIDE HYDROCHLORIDE [Suspect]
     Active Substance: METOCLOPRAMIDE HYDROCHLORIDE
     Indication: Product used for unknown indication
     Dosage: 10 MILLIGRAM, EVERY 8 HRS
     Route: 048
     Dates: start: 20220920, end: 20220924
  9. PERFALGAN [Suspect]
     Active Substance: ACETAMINOPHEN
     Indication: Product used for unknown indication
     Dosage: 1000 MILLIGRAM, ONCE1000.0MG ONCE/SINGLE ADMINISTRATION
     Route: 065
     Dates: start: 20220919, end: 20220919
  10. LEVOTHYROXINE [Concomitant]
     Active Substance: LEVOTHYROXINE
     Indication: Product used for unknown indication
     Dosage: UNK
  11. LANTUS [Concomitant]
     Active Substance: INSULIN GLARGINE
     Indication: Product used for unknown indication
     Dosage: UNK
     Route: 058
  12. NOVORAPID [Concomitant]
     Active Substance: INSULIN ASPART
     Indication: Product used for unknown indication
     Dosage: UNK
     Route: 058
  13. JARDIANCE [Concomitant]
     Active Substance: EMPAGLIFLOZIN
     Indication: Product used for unknown indication
     Dosage: UNK
     Route: 058
  14. MAGNESIUM/MAGNESIUM HYDROXIDE [Concomitant]
     Indication: Product used for unknown indication
     Dosage: UNK
  15. KETAMINE [Concomitant]
     Active Substance: KETAMINE
     Indication: Product used for unknown indication
     Dosage: UNK
     Dates: start: 20220919, end: 20220919
  16. PROPOFOL [Concomitant]
     Active Substance: PROPOFOL
     Indication: Product used for unknown indication
     Dosage: UNK
     Dates: start: 20220919, end: 20220919
  17. SUFENTA [Concomitant]
     Active Substance: SUFENTANIL CITRATE
     Indication: Product used for unknown indication
     Dosage: UNK
     Dates: start: 20220919, end: 20220919
  18. ROBINUL NEOSTIGMINE [Concomitant]
     Indication: Product used for unknown indication
     Dosage: UNK
     Dates: start: 20220919, end: 20220919
  19. ROCURONIUM BROMIDE [Concomitant]
     Active Substance: ROCURONIUM BROMIDE
     Indication: Product used for unknown indication
     Dosage: UNK
     Dates: start: 20220919, end: 20220919
  20. EPHEDRINE [Concomitant]
     Active Substance: EPHEDRINE
     Indication: Product used for unknown indication
     Dosage: UNK
     Dates: start: 20220919, end: 20220919
  21. CLONIDINE [Concomitant]
     Active Substance: CLONIDINE
     Indication: Product used for unknown indication
     Dosage: UNK
     Dates: start: 20220919, end: 20220919
  22. LIDOCAINE [Concomitant]
     Active Substance: LIDOCAINE
     Indication: Product used for unknown indication
     Dosage: UNK
     Dates: start: 20220919, end: 20220919
  23. INDOCYANINE GREEN [Concomitant]
     Active Substance: INDOCYANINE GREEN
     Indication: Product used for unknown indication
     Dosage: UNK
     Dates: start: 20220919, end: 20220919
  24. SODIUM CHLORIDE/MAGNESIUM SULFATE [Concomitant]
     Indication: Product used for unknown indication
     Dosage: UNK
     Dates: start: 20220919, end: 20220919
  25. MORPHINE [Concomitant]
     Active Substance: MORPHINE
     Indication: Product used for unknown indication
     Dosage: UNK
     Dates: start: 20220919, end: 20220919
  26. MORPHINE [Concomitant]
     Active Substance: MORPHINE
     Indication: Product used for unknown indication
     Dosage: UNK
     Dates: start: 20220923, end: 20220923
  27. DROPERIDOL [Concomitant]
     Active Substance: DROPERIDOL
     Indication: Product used for unknown indication
     Dosage: UNK
     Dates: start: 20220919, end: 20220919
  28. ROPIVACAINE [Concomitant]
     Active Substance: ROPIVACAINE
     Indication: Product used for unknown indication
     Dosage: UNK
     Dates: start: 20220919, end: 20220919

REACTIONS (2)
  - Liver function test increased [Not Recovered/Not Resolved]
  - Cholestasis [Unknown]

NARRATIVE: CASE EVENT DATE: 20220926
